FAERS Safety Report 9245526 (Version 1)
Quarter: 2013Q2

REPORT INFORMATION
  Report Type: Spontaneous
  Country: US (occurrence: US)
  Receive Date: 20130422
  Receipt Date: 20130422
  Transmission Date: 20140414
  Serious: No
  Sender: FDA-Public Use
  Company Number: US-PFIZER INC-2013121306

PATIENT
  Age: 66 Year
  Sex: Female

DRUGS (2)
  1. MORPHINE SULFATE [Suspect]
     Dosage: UNK
  2. IODINE [Suspect]
     Dosage: UNK

REACTIONS (2)
  - Drug hypersensitivity [Unknown]
  - Rubber sensitivity [Unknown]
